FAERS Safety Report 8504984-1 (Version None)
Quarter: 2012Q3

REPORT INFORMATION
  Report Type: 
  Country: None (occurrence: None)
  Receive Date: 20120712
  Receipt Date: 20120706
  Transmission Date: 20120928
  Serious: Yes (Death, Other)
  Sender: FDA-Public Use
  Company Number: US-AMGEN-USASP2011015206

PATIENT
  Age: 62 Year
  Sex: Male
  Weight: 67.029 kg

DRUGS (3)
  1. VECTIBIX [Suspect]
     Dosage: 400 MG, Q2WK
     Route: 042
     Dates: start: 20110412, end: 20110413
  2. VECTIBIX [Suspect]
     Indication: COLORECTAL CANCER
     Dosage: 6 MG/KG, Q2WK
     Route: 042
     Dates: start: 20101221, end: 20110328
  3. MAGNESIUM SULFATE [Suspect]
     Indication: MAGNESIUM DEFICIENCY
     Dosage: UNK
     Route: 042
     Dates: start: 20110201, end: 20110415

REACTIONS (15)
  - ADRENAL MASS [None]
  - PRURITUS GENERALISED [None]
  - MAGNESIUM DEFICIENCY [None]
  - DYSPNOEA [None]
  - DIARRHOEA [None]
  - SKIN EXFOLIATION [None]
  - NEOPLASM MALIGNANT [None]
  - SKIN IRRITATION [None]
  - ERYTHEMA [None]
  - NAUSEA [None]
  - RESPIRATORY ARREST [None]
  - SKIN FISSURES [None]
  - RASH [None]
  - SKIN LESION [None]
  - COUGH [None]
